FAERS Safety Report 15554269 (Version 1)
Quarter: 2018Q4

REPORT INFORMATION
  Report Type: Spontaneous
  Country: US (occurrence: US)
  Receive Date: 20181025
  Receipt Date: 20181025
  Transmission Date: 20190205
  Serious: Yes (Other)
  Sender: FDA-Public Use
  Company Number: None

PATIENT
  Age: 31 Year
  Sex: Female
  Weight: 93.6 kg

DRUGS (5)
  1. VENLAFAXINE ER [Suspect]
     Active Substance: VENLAFAXINE HYDROCHLORIDE
     Indication: OBSESSIVE-COMPULSIVE DISORDER
     Dosage: ?          QUANTITY:2 CAPSULE(S);?
     Route: 048
     Dates: start: 20180725, end: 20181015
  2. METHYLPHENIDATE HCL ER [Concomitant]
     Active Substance: METHYLPHENIDATE HYDROCHLORIDE
  3. VENLAFAXINE ER [Suspect]
     Active Substance: VENLAFAXINE HYDROCHLORIDE
     Indication: DEPRESSION
     Dosage: ?          QUANTITY:2 CAPSULE(S);?
     Route: 048
     Dates: start: 20180725, end: 20181015
  4. VENLAFAXINE ER [Suspect]
     Active Substance: VENLAFAXINE HYDROCHLORIDE
     Indication: ANXIETY
     Dosage: ?          QUANTITY:2 CAPSULE(S);?
     Route: 048
     Dates: start: 20180725, end: 20181015
  5. CPAP MACHINE [Concomitant]

REACTIONS (6)
  - Depression [None]
  - Anxiety [None]
  - Feeling of despair [None]
  - Product substitution issue [None]
  - Insomnia [None]
  - Crying [None]

NARRATIVE: CASE EVENT DATE: 20180802
